FAERS Safety Report 9001221 (Version 1)
Quarter: 2013Q1

REPORT INFORMATION
  Report Type: Spontaneous
  Country: US (occurrence: None)
  Receive Date: 20130102
  Receipt Date: 20130102
  Transmission Date: 20140127
  Serious: Yes (Hospitalization)
  Sender: FDA-Public Use
  Company Number: None

PATIENT
  Age: 65 Year
  Sex: Male
  Weight: 108.2 kg

DRUGS (2)
  1. FUROSEMIDE [Suspect]
     Indication: HYPERTENSION
     Route: 048
     Dates: start: 20050425, end: 20121219
  2. SPIRONOLACTONE [Suspect]
     Indication: HYPERTENSION
     Route: 048
     Dates: start: 20121025, end: 20121219

REACTIONS (2)
  - Hypotension [None]
  - Hyperkalaemia [None]
